FAERS Safety Report 4808333-1 (Version None)
Quarter: 2005Q4

REPORT INFORMATION
  Report Type: 
  Country: None (occurrence: None)
  Receive Date: 20051021
  Receipt Date: 20051010
  Transmission Date: 20060501
  Serious: Yes (Hospitalization)
  Sender: FDA-Public Use
  Company Number: HQWYE947410OCT05

PATIENT
  Age: 76 Year
  Sex: Male

DRUGS (10)
  1. EFFEXOR XR [Suspect]
     Dosage: 75 MG 1X PER 1 DAY; ORAL
     Route: 048
     Dates: end: 20050101
  2. MIRTAZAPINE [Suspect]
     Dosage: ORAL
     Route: 048
     Dates: start: 20050228, end: 20050101
  3. WARFARIN SODIUM [Suspect]
     Dosage: ORAL
     Route: 048
  4. OMEPRAZOLE [Concomitant]
  5. CALTRATE 600 (CALCIUM CARBONATE) [Concomitant]
  6. FOLIC ACID [Concomitant]
  7. MIXTARD HUMAN 70/30 [Concomitant]
  8. AMLODIPINE [Concomitant]
  9. ACTILAX (BRAN/FIG/SENNOSIDE A+B) [Concomitant]
  10. OSTELIN (ERGOCALCIFEROL) [Concomitant]

REACTIONS (8)
  - AGITATION [None]
  - CONFUSIONAL STATE [None]
  - DRUG WITHDRAWAL SYNDROME [None]
  - HAEMATEMESIS [None]
  - HALLUCINATION [None]
  - MELAENA [None]
  - SOMNOLENCE [None]
  - VOMITING [None]
